FAERS Safety Report 10047543 (Version 1)
Quarter: 2014Q1

REPORT INFORMATION
  Report Type: Spontaneous
  Country: US (occurrence: None)
  Receive Date: 20140328
  Receipt Date: 20140328
  Transmission Date: 20141002
  Serious: Yes (Other)
  Sender: FDA-Public Use
  Company Number: None

PATIENT
  Age: 39 Year
  Sex: Male
  Weight: 107.96 kg

DRUGS (3)
  1. XARELTO [Suspect]
     Indication: FACTOR V LEIDEN MUTATION
     Dosage: 1 TABLET
     Route: 048
     Dates: start: 20130325, end: 20140324
  2. LOVENOX [Concomitant]
  3. WARFARIN [Concomitant]
     Dates: start: 20130325, end: 20140324

REACTIONS (3)
  - Nausea [None]
  - Dizziness [None]
  - Headache [None]
